FAERS Safety Report 16617973 (Version 1)
Quarter: 2019Q3

REPORT INFORMATION
  Report Type: Spontaneous
  Country: DE (occurrence: DE)
  Receive Date: 20190723
  Receipt Date: 20190723
  Transmission Date: 20191004
  Serious: Yes (Hospitalization)
  Sender: FDA-Public Use
  Company Number: DE-JNJFOC-20190716701

PATIENT
  Age: 18 Year
  Sex: Female

DRUGS (4)
  1. PREDNISOLONE. [Suspect]
     Active Substance: PREDNISOLONE
     Route: 065
     Dates: start: 20180509
  2. PANTOPRAZOLE [Concomitant]
     Active Substance: PANTOPRAZOLE
     Dosage: MORNING
  3. REMICADE [Suspect]
     Active Substance: INFLIXIMAB
     Indication: PRODUCT USED FOR UNKNOWN INDICATION
     Dosage: 20 MG, 1-0-0-0
     Route: 042
  4. EISEN                              /00023501/ [Concomitant]
     Route: 065

REACTIONS (6)
  - Pyrexia [Unknown]
  - Chills [Unknown]
  - Headache [Unknown]
  - Vomiting [Unknown]
  - Nuchal rigidity [Unknown]
  - Dizziness [Unknown]
